FAERS Safety Report 7611967-2 (Version None)
Quarter: 2011Q3

REPORT INFORMATION
  Report Type: 
  Country: None (occurrence: None)
  Receive Date: 20110715
  Receipt Date: 20110706
  Transmission Date: 20111222
  Serious: Yes (Hospitalization)
  Sender: FDA-Public Use
  Company Number: BR-MEDIMMUNE-MEDI-0013326

PATIENT
  Sex: Female
  Weight: 3.3 kg

DRUGS (3)
  1. PROTOVIT [Concomitant]
     Indication: VITAMIN SUPPLEMENTATION
     Route: 048
     Dates: start: 20110512
  2. SYNAGIS [Suspect]
     Route: 030
     Dates: start: 20110401, end: 20110401
  3. FERROUS SULFATE TAB [Concomitant]
     Indication: VITAMIN SUPPLEMENTATION
     Route: 048
     Dates: start: 20110512

REACTIONS (5)
  - PNEUMONIA [None]
  - BRONCHIOLITIS [None]
  - DYSPNOEA [None]
  - VOMITING [None]
  - CRYING [None]
